FAERS Safety Report 8008666-4 (Version None)
Quarter: 2011Q4

REPORT INFORMATION
  Report Type: 
  Country: None (occurrence: None)
  Receive Date: 20111221
  Receipt Date: 20111209
  Transmission Date: 20120403
  Serious: Yes (Hospitalization)
  Sender: FDA-Public Use
  Company Number: 1000026358

PATIENT
  Age: 52 Year
  Sex: Female

DRUGS (6)
  1. STILNOX (ZOLPIDEM TARTRATE) (ZOLPIDEM TARTRATE) [Concomitant]
  2. ESCITALOPRAM OXALATE [Suspect]
     Indication: DEPRESSION
     Dosage: 1 DF (DOSAGE FORMS, 1 IN 1 D), ORAL
     Route: 048
  3. BACLOFEN [Suspect]
     Indication: ALCOHOL ABUSE
     Dosage: ORAL
     Route: 048
     Dates: start: 20111109, end: 20111101
  4. AMOXAPINE [Suspect]
     Indication: DEPRESSION
     Dosage: 2 DF (2 DOSAGE FORMS, 1 IN 1 D), ORAL
     Route: 048
  5. LITHIUM CARBONATE [Suspect]
     Dosage: 2 DF (DOSAGE FORMS, 1 IN 1 D), ORAL
     Route: 048
  6. AVLOCARDYL (PROPRANOLOL) (PROPRANOLOL) [Concomitant]

REACTIONS (13)
  - DRUG INTERACTION [None]
  - BLADDER DILATATION [None]
  - BLOOD PRESSURE SYSTOLIC INCREASED [None]
  - RIGHT ATRIAL HYPERTROPHY [None]
  - ABDOMINAL DISTENSION [None]
  - COMA [None]
  - BLOOD GLUCOSE INCREASED [None]
  - AGITATION [None]
  - SINUS TACHYCARDIA [None]
  - GRAND MAL CONVULSION [None]
  - CONVULSIVE THRESHOLD LOWERED [None]
  - POSTICTAL STATE [None]
  - TREATMENT NONCOMPLIANCE [None]
